FAERS Safety Report 5003467-3 (Version None)
Quarter: 2006Q2

REPORT INFORMATION
  Report Type: 
  Country: None (occurrence: None)
  Receive Date: 20060516
  Receipt Date: 20060512
  Transmission Date: 20061013
  Serious: Yes (Life-Threatening, Hospitalization)
  Sender: FDA-Public Use
  Company Number: BE-ABBOTT-06P-013-0333101-00

PATIENT
  Sex: Male

DRUGS (4)
  1. RITONAVIR SOFT GELATIN CAPSULES [Suspect]
     Indication: HIV INFECTION
     Route: 048
     Dates: start: 20060328
  2. TIPRANAVIR [Concomitant]
     Indication: HIV INFECTION
     Route: 048
     Dates: start: 20060328
  3. LAMIVUDINE [Concomitant]
     Indication: HIV INFECTION
     Route: 048
  4. VIREAD [Concomitant]
     Indication: HIV INFECTION
     Route: 048

REACTIONS (5)
  - CANDIDIASIS [None]
  - HYPERCOAGULATION [None]
  - INTERVERTEBRAL DISC PROTRUSION [None]
  - TESTIS CANCER [None]
  - VENOUS THROMBOSIS [None]
